FAERS Safety Report 9391174 (Version 6)
Quarter: 2013Q4

REPORT INFORMATION
  Report Type: Report from Study
  Country: BR (occurrence: BR)
  Receive Date: 20130709
  Receipt Date: 20131219
  Transmission Date: 20140711
  Serious: Yes (Hospitalization, Other)
  Sender: FDA-Public Use
  Company Number: BR-US-EMD SERONO, INC.-7222548

PATIENT
  Sex: Female

DRUGS (5)
  1. REBIF [Suspect]
     Indication: RELAPSING-REMITTING MULTIPLE SCLEROSIS
     Dates: start: 20120611, end: 20131129
  2. REBIF [Suspect]
     Dosage: INJECTION OF HALF DOSAGE
     Dates: start: 20131211
  3. NIMESULIDE [Suspect]
     Indication: PRODUCT USED FOR UNKNOWN INDICATION
  4. AMOXICILLIN [Concomitant]
     Indication: PRODUCT USED FOR UNKNOWN INDICATION
  5. EXODUS [Concomitant]
     Indication: PRODUCT USED FOR UNKNOWN INDICATION

REACTIONS (11)
  - Pyelonephritis [Unknown]
  - Back pain [Unknown]
  - Lipodystrophy acquired [Not Recovered/Not Resolved]
  - Tooth extraction [Unknown]
  - Gastric mucosal lesion [Unknown]
  - Nephropathy toxic [Unknown]
  - Vomiting [Unknown]
  - Unevaluable event [Unknown]
  - Injection site erythema [Not Recovered/Not Resolved]
  - Injection site haematoma [Recovered/Resolved]
  - Injection site injury [Unknown]
